FAERS Safety Report 19406895 (Version 1)
Quarter: 2021Q2

REPORT INFORMATION
  Report Type: Spontaneous
  Country: US (occurrence: US)
  Receive Date: 20210611
  Receipt Date: 20210611
  Transmission Date: 20210717
  Serious: No
  Sender: FDA-Public Use
  Company Number: US-ASTRAZENECA-2021A438223

PATIENT
  Sex: Male
  Weight: 154.2 kg

DRUGS (1)
  1. BYDUREON BCISE [Suspect]
     Active Substance: EXENATIDE
     Indication: DIABETES MELLITUS
     Route: 058
     Dates: start: 20210505

REACTIONS (7)
  - Constipation [Unknown]
  - Abdominal distension [Unknown]
  - Headache [Unknown]
  - Vomiting [Unknown]
  - Gastric disorder [Unknown]
  - Diarrhoea [Unknown]
  - Dyspepsia [Unknown]
